FAERS Safety Report 7486591-5 (Version None)
Quarter: 2011Q2

REPORT INFORMATION
  Report Type: 
  Country: None (occurrence: None)
  Receive Date: 20110516
  Receipt Date: 20110516
  Transmission Date: 20111010
  Serious: Yes (Death)
  Sender: FDA-Public Use
  Company Number: None

PATIENT
  Sex: Female
  Weight: 63.5036 kg

DRUGS (1)
  1. VICODIN [Suspect]
     Dosage: PO
     Route: 048
     Dates: start: 20110506, end: 20110506

REACTIONS (1)
  - DEATH [None]
